FAERS Safety Report 20059670 (Version 2)
Quarter: 2021Q4

REPORT INFORMATION
  Report Type: Spontaneous
  Country: EG (occurrence: EG)
  Receive Date: 20211111
  Receipt Date: 20211215
  Transmission Date: 20220303
  Serious: Yes (Death, Other)
  Sender: FDA-Public Use
  Company Number: EG-PFIZER INC-2020276430

PATIENT
  Age: 72 Year
  Sex: Female

DRUGS (6)
  1. IBRANCE [Suspect]
     Active Substance: PALBOCICLIB
     Indication: Breast cancer metastatic
     Dosage: 125 MG, CYCLIC (ONCE DAILY, 3 WEEKS ON/1 WEEK OFF)
     Route: 048
     Dates: start: 202002, end: 2020
  2. IBRANCE [Suspect]
     Active Substance: PALBOCICLIB
     Dosage: 100 MG, CYCLIC (ONCE DAILY FOR 3 WEEKS ON THEN 1 WEEK OFF)
     Route: 048
     Dates: start: 2020, end: 2020
  3. IBRANCE [Suspect]
     Active Substance: PALBOCICLIB
     Dosage: 100 MG, CYCLIC (ONCE DAILY FOR 3 WEEKS ON THEN 1 WEEK OFF)
     Route: 048
  4. FASLODEX [Concomitant]
     Active Substance: FULVESTRANT
     Indication: Breast cancer metastatic
     Dosage: 2 DF (2 AMPOULES), MONTHLY
  5. FEMARA [Concomitant]
     Active Substance: LETROZOLE
     Indication: Breast cancer metastatic
     Dosage: 1 DF (1 TAB), DAILY
  6. RABEPRAKYRL [Concomitant]
     Dosage: 1 DF (1 TAB), 2X/DAY (ONE TAB DAY AND NIGHT ONE HOUR BEFORE FOOD)

REACTIONS (5)
  - Death [Fatal]
  - Neutropenia [Unknown]
  - White blood cell count decreased [Unknown]
  - Hepatic enzyme increased [Unknown]
  - Swelling [Unknown]

NARRATIVE: CASE EVENT DATE: 20200101
